FAERS Safety Report 8165296-1 (Version None)
Quarter: 2012Q1

REPORT INFORMATION
  Report Type: 
  Country: None (occurrence: None)
  Receive Date: 20120227
  Receipt Date: 20120215
  Transmission Date: 20120608
  Serious: Yes (Hospitalization)
  Sender: FDA-Public Use
  Company Number: US-JNJFOC-20120208091

PATIENT
  Sex: Female
  Weight: 117.94 kg

DRUGS (4)
  1. NEURONTIN [Concomitant]
     Indication: BACK PAIN
     Route: 065
     Dates: start: 20110101
  2. LORTAB [Concomitant]
     Indication: BACK PAIN
     Route: 048
     Dates: start: 20110101
  3. FENTANYL-100 [Suspect]
     Indication: BACK PAIN
     Dosage: 75 UG/HR X 3 PATCHES
     Route: 062
  4. DURAGESIC-100 [Suspect]
     Indication: BACK PAIN
     Route: 062
     Dates: start: 20010101

REACTIONS (7)
  - INTERVERTEBRAL DISC PROTRUSION [None]
  - VOMITING [None]
  - PAIN [None]
  - NAUSEA [None]
  - NEUROLOGICAL INFECTION [None]
  - NERVE INJURY [None]
  - DRUG INEFFECTIVE [None]
